FAERS Safety Report 8128946-1 (Version None)
Quarter: 2012Q1

REPORT INFORMATION
  Report Type: 
  Country: None (occurrence: None)
  Receive Date: 20120210
  Receipt Date: 20110614
  Transmission Date: 20120608
  Serious: No
  Sender: FDA-Public Use
  Company Number: US-BRISTOL-MYERS SQUIBB COMPANY-15829633

PATIENT
  Sex: Female

DRUGS (3)
  1. ORENCIA [Suspect]
     Dosage: NO OF INF:1
     Dates: start: 20110101
  2. LISINOPRIL [Concomitant]
  3. VERAPAMIL [Concomitant]

REACTIONS (1)
  - BLISTER [None]
